FAERS Safety Report 5008185-3 (Version None)
Quarter: 2006Q2

REPORT INFORMATION
  Report Type: 
  Country: None (occurrence: None)
  Receive Date: 20060404
  Receipt Date: 20050411
  Transmission Date: 20061013
  Serious: Yes (Hospitalization, Other)
  Sender: FDA-Public Use
  Company Number: 2004054027

PATIENT
  Age: 53 Year
  Sex: Female

DRUGS (5)
  1. GEODON [Suspect]
     Indication: ILL-DEFINED DISORDER
  2. RISPERIDONE [Suspect]
     Indication: ILL-DEFINED DISORDER
  3. LAMOTRIGINE [Suspect]
     Indication: ILL-DEFINED DISORDER
  4. CITALOPRAM HYDROBROMIDE [Concomitant]
  5. ALL OTHER THERAPEUTIC PRODUCTS (ALL OTHER THERAPEUTIC PRODUCTS) [Concomitant]

REACTIONS (2)
  - DEHYDRATION [None]
  - ELECTROCARDIOGRAM ABNORMAL [None]
